FAERS Safety Report 4450710-5 (Version None)
Quarter: 2004Q3

REPORT INFORMATION
  Report Type: 
  Country: None (occurrence: None)
  Receive Date: 20040914
  Receipt Date: 20040914
  Transmission Date: 20050211
  Serious: No
  Sender: FDA-Public Use
  Company Number: None

PATIENT
  Age: 46 Year
  Sex: Female
  Weight: 72.5755 kg

DRUGS (2)
  1. ULTRAM [Suspect]
     Indication: FIBROMYALGIA
     Dosage: 4-6 / DAY EVERYDAY ORAL
     Route: 048
     Dates: start: 20020902, end: 20040913
  2. ULTRAM [Suspect]
     Indication: PAIN
     Dosage: 4-6 / DAY EVERYDAY ORAL
     Route: 048
     Dates: start: 20020902, end: 20040913

REACTIONS (3)
  - PHARMACEUTICAL PRODUCT COMPLAINT [None]
  - PHARMACEUTICAL PRODUCT COUNTERFEIT [None]
  - TREMOR [None]
